FAERS Safety Report 8650289 (Version 2)
Quarter: 2013Q2

REPORT INFORMATION
  Report Type: Spontaneous
  Country: US (occurrence: US)
  Receive Date: 20120705
  Receipt Date: 20130614
  Transmission Date: 20140414
  Serious: Yes (Other)
  Sender: FDA-Public Use
  Company Number: US-PFIZER INC-2012158190

PATIENT
  Age: 56 Year
  Sex: Female

DRUGS (3)
  1. CHANTIX [Suspect]
     Dosage: STARTING MONTH PACK AS DIRECTED
     Dates: start: 20090811, end: 20090908
  2. OXYBUTYNIN CHLORIDE [Concomitant]
     Dosage: 10 MG (ONE TABLET), UNK
     Dates: start: 20090811
  3. ESGIC-PLUS [Concomitant]
     Dosage: 1 DF, UNK
     Dates: start: 20090811

REACTIONS (6)
  - Suicidal ideation [Unknown]
  - Depression [Unknown]
  - Anxiety [Unknown]
  - Panic attack [Unknown]
  - Anger [Unknown]
  - Abnormal dreams [Unknown]
